FAERS Safety Report 5156293-9 (Version None)
Quarter: 2006Q4

REPORT INFORMATION
  Report Type: 
  Country: None (occurrence: None)
  Receive Date: 20061122
  Receipt Date: 20061116
  Transmission Date: 20070319
  Serious: Yes (Other)
  Sender: FDA-Public Use
  Company Number: US-GLAXOSMITHKLINE-A0627951A

PATIENT
  Sex: Female

DRUGS (1)
  1. COREG [Suspect]

REACTIONS (1)
  - VISUAL ACUITY REDUCED [None]
